FAERS Safety Report 4419622-7 (Version None)
Quarter: 2004Q3

REPORT INFORMATION
  Report Type: 
  Country: None (occurrence: None)
  Receive Date: 20040809
  Receipt Date: 20040227
  Transmission Date: 20050211
  Serious: No
  Sender: FDA-Public Use
  Company Number: US-GLAXOSMITHKLINE-A0500371A

PATIENT
  Sex: Male

DRUGS (7)
  1. PAXIL [Suspect]
     Indication: DEPRESSION
     Dosage: 20MG TWICE PER DAY
     Route: 048
     Dates: start: 20040101
  2. ELAVIL [Concomitant]
  3. INHALERS [Concomitant]
  4. NEURONTIN [Concomitant]
  5. XANAX [Concomitant]
  6. TENORMIN [Concomitant]
  7. SYNTHROID [Concomitant]

REACTIONS (3)
  - DYSPEPSIA [None]
  - MELAENA [None]
  - NAUSEA [None]
